FAERS Safety Report 19465928 (Version 2)
Quarter: 2021Q4

REPORT INFORMATION
  Report Type: Report from Study
  Country: JP (occurrence: JP)
  Receive Date: 20210625
  Receipt Date: 20211205
  Transmission Date: 20220304
  Serious: Yes (Other)
  Sender: FDA-Public Use
  Company Number: JP-ACTELION-A-CH2016-138459

PATIENT
  Age: 47 Year
  Sex: Female
  Weight: 64.2 kg

DRUGS (49)
  1. OPSUMIT [Suspect]
     Active Substance: MACITENTAN
     Indication: Pulmonary arterial hypertension
     Dosage: 10 MG, OD
     Route: 048
     Dates: start: 20160519, end: 20170711
  2. OPSUMIT [Suspect]
     Active Substance: MACITENTAN
     Dosage: 7.5 MG, QD
     Route: 048
     Dates: start: 20170712, end: 20170718
  3. OPSUMIT [Suspect]
     Active Substance: MACITENTAN
     Dosage: 5 MG, QD
     Route: 048
     Dates: start: 20170719
  4. UPTRAVI [Suspect]
     Active Substance: SELEXIPAG
     Indication: Pulmonary arterial hypertension
     Dosage: 0.1 MG, BID
     Route: 048
     Dates: start: 20161129, end: 20161205
  5. UPTRAVI [Suspect]
     Active Substance: SELEXIPAG
     Dosage: 0.2 MG, BID
     Route: 048
     Dates: start: 20161206, end: 20161212
  6. UPTRAVI [Suspect]
     Active Substance: SELEXIPAG
     Dosage: 0.3 MG, BID
     Route: 048
     Dates: start: 20161213, end: 20161219
  7. UPTRAVI [Suspect]
     Active Substance: SELEXIPAG
     Dosage: 0.4 MG, BID
     Route: 048
     Dates: start: 20161220, end: 20161226
  8. UPTRAVI [Suspect]
     Active Substance: SELEXIPAG
     Dosage: 0.5 MG, BID
     Route: 048
     Dates: start: 20161227, end: 20170105
  9. UPTRAVI [Suspect]
     Active Substance: SELEXIPAG
     Dosage: 0.6 MG, BID
     Route: 048
     Dates: start: 20170106, end: 20170130
  10. UPTRAVI [Suspect]
     Active Substance: SELEXIPAG
     Dosage: 0.5 MG, BID
     Route: 048
     Dates: start: 20170201, end: 20170214
  11. UPTRAVI [Suspect]
     Active Substance: SELEXIPAG
     Dosage: 0.4MG AM, 0.6MG PM
     Route: 048
     Dates: start: 20170215, end: 20170314
  12. UPTRAVI [Suspect]
     Active Substance: SELEXIPAG
     Dosage: 0.5MG AM, 0.6MG PM
     Route: 048
     Dates: start: 20170314, end: 20170417
  13. UPTRAVI [Suspect]
     Active Substance: SELEXIPAG
     Dosage: 0.6 MG, BID
     Route: 048
     Dates: start: 20170418, end: 20170501
  14. UPTRAVI [Suspect]
     Active Substance: SELEXIPAG
     Dosage: 1.3 MG, QD
     Route: 048
     Dates: start: 20170502, end: 20170508
  15. UPTRAVI [Suspect]
     Active Substance: SELEXIPAG
     Dosage: 0.7 MG, BID
     Route: 048
     Dates: start: 20170509, end: 20170530
  16. UPTRAVI [Suspect]
     Active Substance: SELEXIPAG
     Dosage: 0.7MG AM, 0.8MG PM
     Route: 048
     Dates: start: 20170531, end: 20170912
  17. UPTRAVI [Suspect]
     Active Substance: SELEXIPAG
     Dosage: 0.7 MG, BID
     Route: 048
     Dates: start: 20170913
  18. UPTRAVI [Suspect]
     Active Substance: SELEXIPAG
     Route: 048
  19. UPTRAVI [Suspect]
     Active Substance: SELEXIPAG
     Route: 048
     Dates: start: 20170131, end: 20210313
  20. LOSARTAN POTASSIUM [Suspect]
     Active Substance: LOSARTAN POTASSIUM
     Indication: Right ventricular failure
     Dosage: 15 MG, QD
     Route: 048
     Dates: end: 20160601
  21. LOSARTAN POTASSIUM [Suspect]
     Active Substance: LOSARTAN POTASSIUM
     Dosage: 10 MG, QD
     Route: 048
     Dates: start: 20161025, end: 20161101
  22. LOSARTAN POTASSIUM [Suspect]
     Active Substance: LOSARTAN POTASSIUM
     Dosage: 15 MG, QD
     Route: 048
     Dates: start: 20161102, end: 20170117
  23. LOSARTAN POTASSIUM [Suspect]
     Active Substance: LOSARTAN POTASSIUM
     Dosage: 20 MG, QD
     Route: 048
     Dates: start: 20170118, end: 20170206
  24. LOSARTAN POTASSIUM [Suspect]
     Active Substance: LOSARTAN POTASSIUM
     Dosage: 25 MG, QD
     Route: 048
     Dates: start: 20170207, end: 20170214
  25. LOSARTAN POTASSIUM [Suspect]
     Active Substance: LOSARTAN POTASSIUM
     Dosage: 20 MG, QD
     Route: 048
     Dates: start: 20170215, end: 20170620
  26. TORSEMIDE [Suspect]
     Active Substance: TORSEMIDE
     Indication: Right ventricular failure
     Dosage: 8 MG, QD
     Route: 048
     Dates: end: 20160601
  27. TORSEMIDE [Suspect]
     Active Substance: TORSEMIDE
     Dosage: 8 MG, QD
     Route: 048
     Dates: start: 20160816
  28. ADCIRCA [Suspect]
     Active Substance: TADALAFIL
     Indication: Pulmonary arterial hypertension
     Dosage: 40 MG, QD
     Route: 048
  29. ADCIRCA [Suspect]
     Active Substance: TADALAFIL
     Dosage: 20 MG, QD
     Route: 048
  30. ADCIRCA [Suspect]
     Active Substance: TADALAFIL
     Dosage: 20 MG, BID
     Route: 048
     Dates: end: 20170912
  31. ADCIRCA [Suspect]
     Active Substance: TADALAFIL
     Dosage: 20 MG, QD
     Route: 048
     Dates: start: 20170913, end: 20171003
  32. ADCIRCA [Suspect]
     Active Substance: TADALAFIL
     Dosage: 10 MG, QD
     Route: 048
     Dates: start: 20171004
  33. CARVEDILOL [Suspect]
     Active Substance: CARVEDILOL
     Indication: Product used for unknown indication
     Dosage: 2.5 MG, QD
     Route: 048
     Dates: end: 20161115
  34. CARVEDILOL [Suspect]
     Active Substance: CARVEDILOL
     Dosage: 5 MG, QD
     Route: 048
     Dates: start: 20161116, end: 20170619
  35. CARVEDILOL [Suspect]
     Active Substance: CARVEDILOL
     Dosage: 2.5 MG, QD
     Route: 048
     Dates: start: 20170620
  36. CARVEDILOL [Suspect]
     Active Substance: CARVEDILOL
     Indication: Pulmonary arterial hypertension
     Dosage: 5 MG, QD
     Route: 048
     Dates: end: 20170119
  37. CARVEDILOL [Suspect]
     Active Substance: CARVEDILOL
     Indication: Right ventricular failure
     Dosage: 1.25 MG, BID
     Route: 048
     Dates: start: 20170620
  38. DIGOXIN [Concomitant]
     Active Substance: DIGOXIN
     Indication: Right ventricular failure
     Dosage: 0.125 MG, QD
     Route: 048
  39. ALLOPURINOL [Concomitant]
     Active Substance: ALLOPURINOL
     Indication: Prophylaxis
     Route: 048
  40. FUROSEMIDE [Concomitant]
     Active Substance: FUROSEMIDE
     Indication: Right ventricular failure
     Dosage: 120 MG, QD
     Route: 048
  41. PIMOBENDAN [Concomitant]
     Active Substance: PIMOBENDAN
     Indication: Right ventricular failure
     Dosage: 2.5 MG, QD
     Route: 048
  42. BERAPROST SODIUM [Concomitant]
     Active Substance: BERAPROST SODIUM
     Indication: Right ventricular failure
     Route: 048
  43. SLOW-K [Concomitant]
     Active Substance: POTASSIUM CHLORIDE
     Indication: Right ventricular failure
     Dosage: 600 MG, QD
     Route: 048
  44. SPIRONOLACTONE [Concomitant]
     Active Substance: SPIRONOLACTONE
     Indication: Right ventricular failure
     Dosage: 50 MG, QD
     Route: 048
  45. ASPIRIN [Concomitant]
     Active Substance: ASPIRIN
     Indication: Thrombosis prophylaxis
     Dosage: 100 MG, QD
     Route: 048
  46. OXYGEN [Concomitant]
     Active Substance: OXYGEN
     Route: 055
  47. WARFARIN [Concomitant]
     Active Substance: WARFARIN
     Dosage: 4.25 MG, QD
  48. ALLOPURINOL [Concomitant]
     Active Substance: ALLOPURINOL
     Indication: Hyperuricaemia
     Dosage: 100 MG, QD
     Route: 048
  49. ALLOPURINOL [Concomitant]
     Active Substance: ALLOPURINOL
     Indication: Gout

REACTIONS (12)
  - Cardiac failure [Recovering/Resolving]
  - Blood creatinine increased [Recovered/Resolved]
  - Blood pressure decreased [Recovered/Resolved]
  - Dehydration [Recovered/Resolved]
  - Oedema peripheral [Recovered/Resolved]
  - Pleural effusion [Recovering/Resolving]
  - Ascites [Recovering/Resolving]
  - Concomitant disease aggravated [Recovering/Resolving]
  - Diarrhoea [Recovering/Resolving]
  - Off label use [Unknown]
  - Medication error [Unknown]
  - Pulmonary congestion [Recovered/Resolved]

NARRATIVE: CASE EVENT DATE: 20160525
